FAERS Safety Report 9292984 (Version 1)
Quarter: 2013Q2

REPORT INFORMATION
  Report Type: Spontaneous
  Country: DE (occurrence: DE)
  Receive Date: 20130516
  Receipt Date: 20130516
  Transmission Date: 20140414
  Serious: Yes (Hospitalization, Other)
  Sender: FDA-Public Use
  Company Number: DE-PFIZER INC-2013146716

PATIENT
  Age: 49 Year
  Sex: Male

DRUGS (1)
  1. SILDENAFIL CITRATE [Suspect]
     Indication: SEXUAL ACTIVITY INCREASED
     Dosage: 300 MG, DAILY

REACTIONS (3)
  - Drug abuse [Unknown]
  - Vertebral artery dissection [Recovered/Resolved]
  - Cerebellar infarction [Unknown]
